FAERS Safety Report 8906207 (Version 1)
Quarter: 2012Q4

REPORT INFORMATION
  Report Type: Spontaneous
  Country: US (occurrence: None)
  Receive Date: 20121112
  Receipt Date: 20121112
  Transmission Date: 20130627
  Serious: Yes (Hospitalization)
  Sender: FDA-Public Use
  Company Number: None

PATIENT
  Age: 61 Year
  Sex: Female
  Weight: 75.75 kg

DRUGS (3)
  1. ATORVASTATIN [Suspect]
     Indication: HYPERLIPIDEMIA
     Dosage: 80 mg once daily po
     Route: 048
     Dates: start: 20091211, end: 20091217
  2. ATORVASTATIN [Suspect]
     Indication: CORONARY ARTERY DISEASE
     Dosage: 80 mg once daily po
     Route: 048
     Dates: start: 20091211, end: 20091217
  3. ATORVASTATIN [Suspect]
     Indication: CABG
     Dosage: 80 mg once daily po
     Route: 048
     Dates: start: 20091211, end: 20091217

REACTIONS (6)
  - Pyrexia [None]
  - Nausea [None]
  - Vomiting [None]
  - Rash [None]
  - Hypotension [None]
  - Hepatic enzyme increased [None]
